FAERS Safety Report 22645355 (Version 1)
Quarter: 2023Q2

REPORT INFORMATION
  Report Type: Spontaneous
  Country: US (occurrence: US)
  Receive Date: 20230627
  Receipt Date: 20230627
  Transmission Date: 20230721
  Serious: No
  Sender: FDA-Public Use
  Company Number: US-SA-SAC20230626000559

PATIENT
  Sex: Female

DRUGS (3)
  1. XYZAL [Interacting]
     Active Substance: LEVOCETIRIZINE DIHYDROCHLORIDE
     Route: 065
  2. TRELEGY ELLIPTA [Interacting]
     Active Substance: FLUTICASONE FUROATE\UMECLIDINIUM BROMIDE\VILANTEROL TRIFENATATE
  3. DUPIXENT [Concomitant]
     Active Substance: DUPILUMAB

REACTIONS (4)
  - Constipation [Unknown]
  - Dry eye [Unknown]
  - Dry mouth [Unknown]
  - Drug interaction [Unknown]
